FAERS Safety Report 4747929-2 (Version None)
Quarter: 2005Q3

REPORT INFORMATION
  Report Type: 
  Country: None (occurrence: None)
  Receive Date: 20050816
  Receipt Date: 20050803
  Transmission Date: 20060218
  Serious: Yes (Life-Threatening, Hospitalization)
  Sender: FDA-Public Use
  Company Number: S04-USA-07194-02

PATIENT
  Sex: Male
  Weight: 2.04 kg

DRUGS (12)
  1. CELEXA [Suspect]
     Indication: DEPRESSION
     Dosage: 20 MG QD PO
     Route: 048
     Dates: start: 20041019, end: 20050408
  2. LEXAPRO [Suspect]
     Indication: DEPRESSION
     Dosage: 50 MG QD PO
     Route: 048
     Dates: start: 20040801, end: 20040920
  3. LEXAPRO [Suspect]
     Indication: DEPRESSION
     Dosage: 40 MG QD PO
     Route: 048
     Dates: start: 20040921, end: 20040101
  4. LEXAPRO [Suspect]
     Indication: DEPRESSION
     Dosage: 10 MG QD PO
     Route: 048
     Dates: start: 20040101, end: 20041005
  5. CLARITIN [Concomitant]
  6. NATELLE (PRENATAL VITAMINS) [Concomitant]
  7. ROCEPHIN [Concomitant]
  8. ZOFRAN [Concomitant]
  9. TERBUTALINE [Concomitant]
  10. MAGNESIUM SULFATE [Concomitant]
  11. PROCARDIA [Concomitant]
  12. SPINAL ANALGESIA/ANESHTESIA (NOS) [Concomitant]

REACTIONS (5)
  - CAESAREAN SECTION [None]
  - DRUG EXPOSURE DURING PREGNANCY [None]
  - IMMATURE RESPIRATORY SYSTEM [None]
  - INFANTILE COLIC [None]
  - PREMATURE BABY [None]
